FAERS Safety Report 6182202-X (Version None)
Quarter: 2009Q2

REPORT INFORMATION
  Report Type: 
  Country: None (occurrence: None)
  Receive Date: 20090505
  Receipt Date: 20090505
  Transmission Date: 20091009
  Serious: No
  Sender: FDA-Public Use
  Company Number: None

PATIENT
  Sex: Female
  Weight: 72.5755 kg

DRUGS (9)
  1. DIGOXIN [Suspect]
     Indication: ATRIAL FIBRILLATION
     Dosage: 0.125MG DAILY ORAL
     Route: 048
     Dates: start: 20071101
  2. HYDRALAZINE HCL [Concomitant]
  3. HYDROCHLOROTHIAZIDE [Concomitant]
  4. IBPROFEN [Concomitant]
  5. XOPENEX HFA [Concomitant]
  6. . [Concomitant]
  7. POTASSIUM CHLORIDE [Concomitant]
  8. ACTONEL [Concomitant]
  9. ZOCOR [Concomitant]

REACTIONS (2)
  - BRADYCARDIA [None]
  - PRODUCT SUBSTITUTION ISSUE [None]
